FAERS Safety Report 6842610-8 (Version None)
Quarter: 2010Q3

REPORT INFORMATION
  Report Type: 
  Country: None (occurrence: None)
  Receive Date: 20100714
  Receipt Date: 20070801
  Transmission Date: 20110219
  Serious: No
  Sender: FDA-Public Use
  Company Number: US-PFIZER INC-2007065211

PATIENT
  Sex: Female
  Weight: 54.5 kg

DRUGS (6)
  1. CHANTIX [Suspect]
     Indication: SMOKING CESSATION THERAPY
     Dates: start: 20070101
  2. TOPROL-XL [Concomitant]
     Indication: HYPERTENSION
  3. ALTACE [Concomitant]
  4. PREVACID [Concomitant]
     Indication: GASTROOESOPHAGEAL REFLUX DISEASE
  5. VITAMINS [Concomitant]
  6. ZYBAN [Concomitant]
     Indication: SMOKING CESSATION THERAPY

REACTIONS (2)
  - PRURITUS [None]
  - RASH [None]
